FAERS Safety Report 11376695 (Version 1)
Quarter: 2015Q3

REPORT INFORMATION
  Report Type: Spontaneous
  Country: IN (occurrence: IN)
  Receive Date: 20150813
  Receipt Date: 20150813
  Transmission Date: 20151125
  Serious: Yes (Other)
  Sender: FDA-Public Use
  Company Number: PHHY2015IN096377

PATIENT
  Age: 62 Year
  Sex: Male

DRUGS (1)
  1. VOVERAN /IND/ [Suspect]
     Active Substance: DICLOFENAC SODIUM
     Indication: ABDOMINAL PAIN
     Dosage: UNK
     Route: 013

REACTIONS (7)
  - Injection site haemorrhage [Unknown]
  - Dry gangrene [Unknown]
  - Skin discolouration [Recovering/Resolving]
  - Injection site pain [Unknown]
  - Oedema peripheral [Recovering/Resolving]
  - Incorrect route of drug administration [Unknown]
  - Peripheral swelling [Unknown]
